FAERS Safety Report 7615661-3 (Version None)
Quarter: 2011Q3

REPORT INFORMATION
  Report Type: 
  Country: None (occurrence: None)
  Receive Date: 20110715
  Receipt Date: 20110715
  Transmission Date: 20111222
  Serious: Yes (Hospitalization)
  Sender: FDA-Public Use
  Company Number: None

PATIENT
  Sex: Female

DRUGS (1)
  1. COPAXONE [Suspect]
     Indication: MULTIPLE SCLEROSIS
     Dosage: 20 MG DAILY SQ
     Route: 058
     Dates: start: 20101229, end: 20110701

REACTIONS (5)
  - VISION BLURRED [None]
  - DIZZINESS [None]
  - MOTOR DYSFUNCTION [None]
  - INCORRECT ROUTE OF DRUG ADMINISTRATION [None]
  - RESPIRATORY ARREST [None]
